FAERS Safety Report 23747774 (Version 1)
Quarter: 2024Q2

REPORT INFORMATION
  Report Type: Spontaneous
  Country: FR (occurrence: FR)
  Receive Date: 20240416
  Receipt Date: 20240416
  Transmission Date: 20240716
  Serious: Yes (Hospitalization, Other)
  Sender: FDA-Public Use
  Company Number: FR-HALEON-2166409

PATIENT
  Age: 82 Year
  Sex: Female
  Weight: 65 kg

DRUGS (18)
  1. VOLTAREN [Suspect]
     Active Substance: DICLOFENAC SODIUM
     Indication: Pain
     Route: 050
     Dates: start: 20171210, end: 20171210
  2. HYALURONATE SODIUM [Suspect]
     Active Substance: HYALURONATE SODIUM
     Indication: Osteoarthritis
     Dosage: TIME INTERVAL: CYCLICAL
     Route: 014
     Dates: end: 20171206
  3. HYALURONATE SODIUM [Suspect]
     Active Substance: HYALURONATE SODIUM
     Dosage: TIME INTERVAL: CYCLICAL
     Route: 014
     Dates: end: 20171206
  4. BECLOMETHASONE DIPROPIONATE [Suspect]
     Active Substance: BECLOMETHASONE DIPROPIONATE
     Indication: Product used for unknown indication
     Route: 045
  5. BECLOMETHASONE DIPROPIONATE [Suspect]
     Active Substance: BECLOMETHASONE DIPROPIONATE
     Route: 045
  6. DICLOFENAC DIETHYLAMINE [Suspect]
     Active Substance: DICLOFENAC DIETHYLAMINE
     Indication: Pain
     Route: 003
     Dates: end: 20171210
  7. DICLOFENAC [Suspect]
     Active Substance: DICLOFENAC
     Indication: Pain
     Dates: start: 20171210, end: 20171210
  8. RABEPRAZOLE [Suspect]
     Active Substance: RABEPRAZOLE
     Indication: Product used for unknown indication
     Dosage: TIME INTERVAL: AS NECESSARY
     Route: 048
     Dates: end: 20171210
  9. LATANOPROST [Suspect]
     Active Substance: LATANOPROST
     Indication: Glaucoma
     Dosage: 1 DF (1 UG/LITRE)
     Route: 047
     Dates: end: 20171210
  10. LATANOPROST [Suspect]
     Active Substance: LATANOPROST
     Dosage: OCULAR USE
     Dates: end: 20171210
  11. DESLORATADINE [Suspect]
     Active Substance: DESLORATADINE
     Indication: Product used for unknown indication
     Route: 048
     Dates: start: 20171210
  12. BECLOMETHASONE [Suspect]
     Active Substance: BECLOMETHASONE
     Route: 045
     Dates: start: 20171210, end: 20171210
  13. AZOPT [Suspect]
     Active Substance: BRINZOLAMIDE
     Indication: Glaucoma
     Dosage: 1 DF (1 UG/LITRE), QD
     Route: 047
     Dates: start: 20171210
  14. AZOPT [Suspect]
     Active Substance: BRINZOLAMIDE
     Dosage: 1 DF, QD; OCULAR USE
     Dates: start: 20171210, end: 20171210
  15. ATROPA BELLADONNA\HOMEOPATHICS [Suspect]
     Active Substance: ATROPA BELLADONNA\HOMEOPATHICS
     Indication: Pain
     Dosage: TIME INTERVAL: AS NECESSARY: PRN
  16. LAMALINE (ACETAMINOPHEN\CAFFEINE\OPIUM) [Suspect]
     Active Substance: ACETAMINOPHEN\CAFFEINE\OPIUM
     Indication: Pain
     Dosage: TIME INTERVAL: AS NECESSARY: 1 ?G/L, PRN; ORAL USE
     Route: 048
  17. LAMALINE (ACETAMINOPHEN\CAFFEINE\OPIUM) [Suspect]
     Active Substance: ACETAMINOPHEN\CAFFEINE\OPIUM
     Dosage: TIME INTERVAL: AS NECESSARY: PRN
     Route: 048
  18. HYALURONATE SODIUM [Suspect]
     Active Substance: HYALURONATE SODIUM
     Indication: Osteoarthritis
     Route: 048
     Dates: end: 20171210

REACTIONS (1)
  - Pancreatitis acute [Recovered/Resolved]

NARRATIVE: CASE EVENT DATE: 20171209
